FAERS Safety Report 5070060-6 (Version None)
Quarter: 2006Q3

REPORT INFORMATION
  Report Type: 
  Country: None (occurrence: None)
  Receive Date: 20060714
  Receipt Date: 20060406
  Transmission Date: 20061208
  Serious: No
  Sender: FDA-Public Use
  Company Number: 2006SP001586

PATIENT
  Age: 50 Year
  Sex: Female
  Weight: 68.0396 kg

DRUGS (1)
  1. LUNESTA [Suspect]
     Indication: INSOMNIA
     Dosage: 3 MG; ORAL
     Route: 048
     Dates: start: 20060405, end: 20060409

REACTIONS (4)
  - DYSGEUSIA [None]
  - DYSPHONIA [None]
  - PHARYNGOLARYNGEAL PAIN [None]
  - TONGUE BLISTERING [None]
